FAERS Safety Report 4336831-6 (Version None)
Quarter: 2004Q2

REPORT INFORMATION
  Report Type: 
  Country: None (occurrence: None)
  Receive Date: 20040408
  Receipt Date: 20040323
  Transmission Date: 20050107
  Serious: Yes (Hospitalization)
  Sender: FDA-Public Use
  Company Number: 189388

PATIENT
  Age: 48 Year
  Sex: Female
  Weight: 58.9676 kg

DRUGS (5)
  1. AVONEX [Suspect]
     Indication: MULTIPLE SCLEROSIS
     Dosage: 30 MCG QW IM
     Route: 030
     Dates: start: 19970101
  2. AVONEX [Suspect]
     Indication: MULTIPLE SCLEROSIS
     Dosage: 30 MCG QW IM
     Route: 030
  3. OXYCODONE [Concomitant]
  4. SENOKOT [Concomitant]
  5. HABITROL [Concomitant]

REACTIONS (7)
  - CONVULSION [None]
  - DEPRESSION [None]
  - FRACTURE [None]
  - HYPERTENSION [None]
  - LOWER LIMB FRACTURE [None]
  - NECK INJURY [None]
  - ROAD TRAFFIC ACCIDENT [None]
